FAERS Safety Report 15166617 (Version 1)
Quarter: 2018Q3

REPORT INFORMATION
  Report Type: Spontaneous
  Country: BR (occurrence: BR)
  Receive Date: 20180719
  Receipt Date: 20180719
  Transmission Date: 20181010
  Serious: Yes (Hospitalization)
  Sender: FDA-Public Use
  Company Number: BR-BAXTER-2018BAX019769

PATIENT
  Age: 51 Year
  Sex: Male
  Weight: 99 kg

DRUGS (7)
  1. FAULDOXO [Suspect]
     Active Substance: DOXORUBICIN HYDROCHLORIDE
     Indication: B-CELL LYMPHOMA
     Dosage: FIFTH CYCLE OF TREATMENT WITH R?CHOP PROTOCOL.
     Route: 042
     Dates: start: 20180305
  2. GENUXAL [Suspect]
     Active Substance: CYCLOPHOSPHAMIDE
     Indication: B-CELL LYMPHOMA
     Dosage: FIFTH CYCLE OF TREATMENT WITH R?CHOP PROTOCOL.
     Route: 042
     Dates: start: 20180305
  3. MABTHERA [Suspect]
     Active Substance: RITUXIMAB
     Indication: B-CELL LYMPHOMA
     Dosage: FIFTH CYCLE OF TREATMENT WITH R?CHOP PROTOCOL.
     Route: 058
     Dates: start: 20180305
  4. FAULDVINCRI [Suspect]
     Active Substance: VINCRISTINE SULFATE
     Indication: B-CELL LYMPHOMA
     Dosage: FIFTH CYCLE OF TREATMENT WITH R?CHOP PROTOCOL.
     Route: 042
     Dates: start: 20180305
  5. RIVOTRIL [Concomitant]
     Active Substance: CLONAZEPAM
     Indication: PRODUCT USED FOR UNKNOWN INDICATION
     Route: 065
  6. PREDNISOLONE. [Suspect]
     Active Substance: PREDNISOLONE
     Indication: B-CELL LYMPHOMA
     Dosage: FIFTH CYCLE OF TREATMENT WITH R?CHOP PROTOCOL, EVERY 21 DAYS.
     Route: 065
     Dates: start: 20180305
  7. LANSOPRAZOLE. [Concomitant]
     Active Substance: LANSOPRAZOLE
     Indication: PRODUCT USED FOR UNKNOWN INDICATION
     Route: 065

REACTIONS (3)
  - Dysuria [Recovered/Resolved]
  - Febrile neutropenia [Recovered/Resolved]
  - Pain [Recovered/Resolved]

NARRATIVE: CASE EVENT DATE: 20180313
